FAERS Safety Report 12554293 (Version 1)
Quarter: 2016Q3

REPORT INFORMATION
  Report Type: Spontaneous
  Country: CN (occurrence: CN)
  Receive Date: 20160713
  Receipt Date: 20160713
  Transmission Date: 20161109
  Serious: Yes (Disabling, Other)
  Sender: FDA-Public Use
  Company Number: CN-PFIZER INC-2016337115

PATIENT
  Age: 16 Year
  Sex: Female
  Weight: 83 kg

DRUGS (1)
  1. METHOTREXATE SODIUM. [Suspect]
     Active Substance: METHOTREXATE SODIUM
     Indication: ACUTE LYMPHOCYTIC LEUKAEMIA
     Dosage: 3.8 G, 1X/DAY
     Route: 041
     Dates: start: 20160301, end: 20160301

REACTIONS (6)
  - Acute kidney injury [Recovering/Resolving]
  - Nausea [Unknown]
  - Vomiting [Unknown]
  - Rash [Unknown]
  - Gastrointestinal disorder [Unknown]
  - Drug level increased [Recovering/Resolving]

NARRATIVE: CASE EVENT DATE: 20160302
